FAERS Safety Report 20082575 (Version 1)
Quarter: 2021Q4

REPORT INFORMATION
  Report Type: Spontaneous
  Country: DE (occurrence: DE)
  Receive Date: 20211117
  Receipt Date: 20211117
  Transmission Date: 20220303
  Serious: Yes (Hospitalization)
  Sender: FDA-Public Use
  Company Number: DE-ADRED-07158-01

PATIENT
  Age: 59 Year
  Sex: Male
  Weight: 80 kg

DRUGS (1)
  1. PACLITAXEL [Suspect]
     Active Substance: PACLITAXEL
     Indication: Product used for unknown indication
     Dosage: UNK, SCHEMA
     Dates: end: 20210114

REACTIONS (11)
  - Pharyngeal swelling [Unknown]
  - General physical health deterioration [Unknown]
  - Depressed level of consciousness [Unknown]
  - Condition aggravated [Unknown]
  - Anaemia [Unknown]
  - Systemic infection [Unknown]
  - Hypotension [Unknown]
  - Tachycardia [Unknown]
  - Erythema [Unknown]
  - Septic shock [Unknown]
  - Pyrexia [Unknown]
